FAERS Safety Report 6619424-7 (Version None)
Quarter: 2010Q1

REPORT INFORMATION
  Report Type: 
  Country: None (occurrence: None)
  Receive Date: 20100302
  Receipt Date: 20100203
  Transmission Date: 20100710
  Serious: Yes (Hospitalization, Other)
  Sender: FDA-Public Use
  Company Number: PTR-0039-2010

PATIENT
  Age: 40 Year
  Sex: Female

DRUGS (4)
  1. RIBAVIRIN           (RIBAVIRIN) [Suspect]
     Indication: HEPATITIS C
     Dosage: 1200 MG, DIVIDED DOSES), ORAL
     Route: 048
     Dates: start: 20090529, end: 20100110
  2. NON-RIBAVIRIN (UNKNOWN) [Suspect]
     Indication: HEPATITIS C
     Dosage: 400 MG (200 MG, 1 IN 2 D), ORAL
     Route: 048
     Dates: start: 20090527
  3. PEGASYS [Suspect]
     Indication: HEPATITIS C
     Dosage: (180 MCG, EVERY WEEK), SUBCUTANEOUS
     Route: 058
     Dates: start: 20090529, end: 20100110
  4. ZOLOFT [Concomitant]

REACTIONS (7)
  - ABDOMINAL PAIN [None]
  - HAEMATEMESIS [None]
  - HAEMOPTYSIS [None]
  - NAUSEA [None]
  - NO THERAPEUTIC RESPONSE [None]
  - PRODUCT QUALITY ISSUE [None]
  - VOMITING [None]
